FAERS Safety Report 9374395 (Version 2)
Quarter: 2013Q3

REPORT INFORMATION
  Report Type: Report from Study
  Country: LB (occurrence: LB)
  Receive Date: 20130628
  Receipt Date: 20130829
  Transmission Date: 20140515
  Serious: Yes (Hospitalization, Other)
  Sender: FDA-Public Use
  Company Number: PHHY2013LB026742

PATIENT
  Age: 21 Year
  Sex: Female

DRUGS (6)
  1. GLIVEC [Suspect]
     Indication: CHRONIC MYELOID LEUKAEMIA
     Dosage: 400 MG, DAILY
     Route: 048
     Dates: start: 2003
  2. MOTILIUM [Concomitant]
     Dosage: UNK UKN, SOS
     Route: 048
  3. ADVIL [Concomitant]
     Dosage: UNK UKN, SOS
     Route: 048
  4. CYCLOGEST [Concomitant]
     Dosage: 1 DF, QD (EVENING)
     Dates: start: 201305
  5. FEMIBION [Concomitant]
     Dosage: 1 DF, QD
     Route: 048
     Dates: start: 201304
  6. CALCIUM [Concomitant]
     Dosage: 1 DF, QD
     Route: 048
     Dates: start: 201304

REACTIONS (3)
  - Vaginal haemorrhage [Recovering/Resolving]
  - Abortion spontaneous [Unknown]
  - Maternal exposure during pregnancy [Unknown]
